FAERS Safety Report 6760271-3 (Version None)
Quarter: 2010Q2

REPORT INFORMATION
  Report Type: 
  Country: None (occurrence: None)
  Receive Date: 20100608
  Receipt Date: 20091021
  Transmission Date: 20101027
  Serious: No
  Sender: FDA-Public Use
  Company Number: US-BRISTOL-MYERS SQUIBB COMPANY-14827398

PATIENT
  Age: 15 Year
  Sex: Female

DRUGS (4)
  1. SUSTIVA [Suspect]
  2. KALETRA [Concomitant]
  3. DEPO-PROVERA [Concomitant]
  4. AMITRIPTYLINE [Concomitant]

REACTIONS (3)
  - ABNORMAL DREAMS [None]
  - INSOMNIA [None]
  - SOMNOLENCE [None]
